FAERS Safety Report 8806516 (Version 3)
Quarter: 2013Q1

REPORT INFORMATION
  Report Type: Report from Study
  Country: US (occurrence: US)
  Receive Date: 20120925
  Receipt Date: 20130226
  Transmission Date: 20140127
  Serious: No
  Sender: FDA-Public Use
  Company Number: US-VERTEX PHARMACEUTICAL INC.-2012-020766

PATIENT
  Age: 56 Year
  Sex: Female
  Weight: 61 kg

DRUGS (9)
  1. VX-950 (TELAPREVIR) [Suspect]
     Indication: HEPATITIS C
     Dosage: 750 MG, TID
     Route: 048
  2. PEGASYS [Suspect]
     Indication: HEPATITIS C
     Dosage: 180 ?G, UNK
  3. RIBAVIRIN [Suspect]
     Indication: HEPATITIS C
     Dosage: 200 MG, UNK
  4. TRIAMTEREEN/HYDROCHLOOTTHIAZIDE [Concomitant]
  5. METOPROLOL [Concomitant]
     Dosage: 100 MG, UNK
  6. CITALOPRAM [Concomitant]
     Dosage: 20 MG, UNK
  7. ATIVAN [Concomitant]
     Dosage: 1 MG, UNK
  8. COMBIPATCH DIS [Concomitant]
  9. PANTOPRAZOLE [Concomitant]
     Dosage: 20 MG, UNK

REACTIONS (8)
  - Photosensitivity reaction [Unknown]
  - Blister [Recovered/Resolved]
  - Pain [Recovered/Resolved]
  - Pyrexia [Unknown]
  - Abdominal pain upper [Unknown]
  - Rash [Recovered/Resolved]
  - Nausea [Unknown]
  - Pruritus [Recovered/Resolved]
